FAERS Safety Report 7016692-7 (Version None)
Quarter: 2010Q3

REPORT INFORMATION
  Report Type: 
  Country: None (occurrence: None)
  Receive Date: 20100927
  Receipt Date: 20100922
  Transmission Date: 20110219
  Serious: Yes (Hospitalization)
  Sender: FDA-Public Use
  Company Number: CHPA2010US15091

PATIENT
  Age: 59 Year
  Sex: Female
  Weight: 78.912 kg

DRUGS (2)
  1. PREVACID 24 HR [Suspect]
     Indication: GASTROOESOPHAGEAL REFLUX DISEASE
     Dosage: 15 MG, QD
     Route: 048
     Dates: start: 20090101, end: 20100501
  2. PREVACID 24 HR [Suspect]
     Dosage: 30 MG, QD
     Route: 048
     Dates: start: 20100601

REACTIONS (5)
  - COLITIS [None]
  - INTENTIONAL DRUG MISUSE [None]
  - OFF LABEL USE [None]
  - OVERDOSE [None]
  - WEIGHT DECREASED [None]
